FAERS Safety Report 20407275 (Version 1)
Quarter: 2022Q1

REPORT INFORMATION
  Report Type: Spontaneous
  Country: ES (occurrence: ES)
  Receive Date: 20220131
  Receipt Date: 20220131
  Transmission Date: 20220423
  Serious: Yes (Other)
  Sender: FDA-Public Use
  Company Number: ES-GLAXOSMITHKLINE-ES2022EME013937

PATIENT

DRUGS (1)
  1. FLUTICASONE FUROATE\VILANTEROL TRIFENATATE [Suspect]
     Active Substance: FLUTICASONE FUROATE\VILANTEROL TRIFENATATE
     Indication: Product used for unknown indication
     Dosage: 92/22 MICROGRAMS

REACTIONS (14)
  - General physical health deterioration [Unknown]
  - Urethral intrinsic sphincter deficiency [Unknown]
  - Salivary gland disorder [Unknown]
  - Arthropathy [Unknown]
  - Muscle disorder [Unknown]
  - Tendon disorder [Unknown]
  - Dry mouth [Unknown]
  - Gait inability [Unknown]
  - Myalgia [Unknown]
  - Tendonitis [Unknown]
  - Tendon rupture [Unknown]
  - Pain [Unknown]
  - Sleep disorder due to a general medical condition [Unknown]
  - Loss of personal independence in daily activities [Unknown]
